FAERS Safety Report 8953099 (Version 1)
Quarter: 2012Q4

REPORT INFORMATION
  Report Type: 
  Country: US (occurrence: US)
  Receive Date: 20121205
  Receipt Date: 20121205
  Transmission Date: 20130627
  Serious: No
  Sender: FDA-Public Use
  Company Number: US-MYLANLABS-2012S1021619

PATIENT
  Age: 54 Year
  Sex: Female

DRUGS (2)
  1. DOXYCYCLINE HYCLATE DELAYED-RELEASE TABLETS USP [Suspect]
     Indication: ROSACEA
     Route: 048
     Dates: start: 201209, end: 201209
  2. DOXYCYCLINE HYCLATE DELAYED-RELEASE TABLETS USP [Suspect]
     Indication: SINUSITIS
     Route: 048
     Dates: start: 201209, end: 201209

REACTIONS (1)
  - Vomiting [Recovered/Resolved]
